FAERS Safety Report 14911394 (Version 2)
Quarter: 2018Q3

REPORT INFORMATION
  Report Type: Spontaneous
  Country: US (occurrence: US)
  Receive Date: 20180518
  Receipt Date: 20180801
  Transmission Date: 20181010
  Serious: Yes (Death, Hospitalization, Other)
  Sender: FDA-Public Use
  Company Number: US-AMGEN-USASP2018065986

PATIENT
  Age: 63 Year
  Sex: Female

DRUGS (11)
  1. PREDNISONE. [Concomitant]
     Active Substance: PREDNISONE
     Dosage: 40 MG, QD
  2. MULTIVITAMINS [Concomitant]
     Active Substance: VITAMINS
  3. ROMIPLOSTIM [Suspect]
     Active Substance: ROMIPLOSTIM
     Indication: THROMBOCYTOPENIA
     Dosage: UNK
     Route: 065
  4. SIMVASTATIN. [Concomitant]
     Active Substance: SIMVASTATIN
     Dosage: UNK
  5. LEVOTHYROXINE. [Concomitant]
     Active Substance: LEVOTHYROXINE
     Dosage: UNK
  6. TRIMETHOPRIM SULFAMETHOXAZOLE [Concomitant]
     Active Substance: SULFAMETHOXAZOLE\TRIMETHOPRIM
  7. PREDNISONE. [Concomitant]
     Active Substance: PREDNISONE
     Dosage: 20 MG, QD
  8. ESTROGEN [Concomitant]
     Active Substance: ESTROGENS
     Route: 067
  9. ATENOLOL. [Concomitant]
     Active Substance: ATENOLOL
     Dosage: UNK
  10. IMMUNOGLOBULIN [Concomitant]
     Route: 042
  11. IRON [Concomitant]
     Active Substance: IRON
     Dosage: UNK

REACTIONS (13)
  - Bronchopulmonary aspergillosis [Unknown]
  - Back pain [Unknown]
  - Off label use [Unknown]
  - Pulmonary mass [Unknown]
  - Respiratory failure [Unknown]
  - Septic shock [Unknown]
  - Hypotension [Unknown]
  - Ecchymosis [Unknown]
  - Pleural effusion [Unknown]
  - Vasculitis [Unknown]
  - Renal failure [Unknown]
  - Death [Fatal]
  - Acidosis [Unknown]
